FAERS Safety Report 20815251 (Version 2)
Quarter: 2022Q2

REPORT INFORMATION
  Report Type: Other
  Country: FR (occurrence: FR)
  Receive Date: 20220511
  Receipt Date: 20220518
  Transmission Date: 20220721
  Serious: Yes (Hospitalization)
  Sender: FDA-Public Use
  Company Number: None

PATIENT
  Age: 56 Year
  Sex: Male

DRUGS (15)
  1. PROGRAF [Suspect]
     Active Substance: TACROLIMUS
     Indication: Prophylaxis against transplant rejection
     Route: 048
     Dates: start: 20220429, end: 20220430
  2. PROGRAF [Suspect]
     Active Substance: TACROLIMUS
     Dosage: 1 MG, ONCE DAILY DOSE DECREASED
     Route: 048
     Dates: start: 20220502, end: 20220503
  3. PREZISTA [Interacting]
     Active Substance: DARUNAVIR ETHANOLATE
     Indication: Acquired immunodeficiency syndrome
     Dosage: 600 MG, EVERY 12 HOURS (2/24H)
     Route: 065
     Dates: start: 20170808
  4. REYATAZ [Interacting]
     Active Substance: ATAZANAVIR SULFATE
     Indication: Acquired immunodeficiency syndrome
     Route: 065
     Dates: start: 20160609
  5. NORVIR [Interacting]
     Active Substance: RITONAVIR
     Indication: Acquired immunodeficiency syndrome
     Dosage: 100 MG, EVERY 12 HOURS [2/DAY]
     Route: 065
     Dates: start: 20160609
  6. BASILIXIMAB [Concomitant]
     Active Substance: BASILIXIMAB
     Indication: Product used for unknown indication
     Dosage: 20 MG (1 INJECTION), UNKNOWN FREQ.
     Route: 065
     Dates: start: 20220429, end: 20220429
  7. EZETIMIBE\SIMVASTATIN [Concomitant]
     Active Substance: EZETIMIBE\SIMVASTATIN
     Indication: Product used for unknown indication
     Dosage: 10 MG/40 MG 1 TABLET/DAY
     Route: 065
     Dates: start: 20220406
  8. KARDEGIC [Concomitant]
     Active Substance: ASPIRIN DL-LYSINE
     Indication: Product used for unknown indication
     Route: 065
  9. SOLIFENACIN [Concomitant]
     Active Substance: SOLIFENACIN
     Indication: Product used for unknown indication
     Route: 065
  10. AMLODIPINE [Concomitant]
     Active Substance: AMLODIPINE BESYLATE
     Indication: Product used for unknown indication
     Route: 065
  11. IVERMECTIN [Concomitant]
     Active Substance: IVERMECTIN
     Indication: Product used for unknown indication
     Dosage: 18 MG, [IVERMECTIN 3 MG, 6 TABLETS TAKEN ONLY ONE TIME]
     Route: 065
     Dates: start: 20220430, end: 20220430
  12. TIVICAY [Concomitant]
     Active Substance: DOLUTEGRAVIR SODIUM
     Indication: Acquired immunodeficiency syndrome
     Dosage: 50 MG, EVERY 12 HOURS [ 2/DAY]
     Route: 065
     Dates: start: 20180214
  13. METHYLPREDNISOLONE [Concomitant]
     Active Substance: METHYLPREDNISOLONE
     Indication: Product used for unknown indication
     Dosage: 500 MG/24H, ONCE DAILY
     Route: 040
     Dates: start: 20220429, end: 20220429
  14. BACTRIM [Concomitant]
     Active Substance: SULFAMETHOXAZOLE\TRIMETHOPRIM
     Indication: Product used for unknown indication
     Dosage: 800 MG + 160 MG, 0.5/EVERY 2 DAYS
     Route: 065
     Dates: start: 20220429
  15. PREDNISONE [Concomitant]
     Active Substance: PREDNISONE
     Indication: Product used for unknown indication
     Route: 065
     Dates: start: 20220429

REACTIONS (2)
  - Headache [Recovering/Resolving]
  - Accidental overdose [Recovering/Resolving]

NARRATIVE: CASE EVENT DATE: 20220501
